FAERS Safety Report 9789627 (Version 2)
Quarter: 2014Q1

REPORT INFORMATION
  Report Type: Spontaneous
  Country: US (occurrence: US)
  Receive Date: 20131231
  Receipt Date: 20140127
  Transmission Date: 20141002
  Serious: Yes (Death, Hospitalization)
  Sender: FDA-Public Use
  Company Number: US-ACTELION-A-US2013-92930

PATIENT
  Sex: Female

DRUGS (3)
  1. VENTAVIS [Suspect]
     Indication: PULMONARY ARTERIAL HYPERTENSION
     Dosage: 5 MCG 5-6 TIMES A DAY
     Route: 055
     Dates: end: 20131216
  2. LETAIRIS [Suspect]
  3. RIOCIGUAT [Suspect]
     Indication: PULMONARY ARTERIAL HYPERTENSION
     Dosage: UNK
     Dates: start: 20131205, end: 20131206

REACTIONS (6)
  - Cardiac arrest [Fatal]
  - Clostridium difficile infection [Unknown]
  - Diarrhoea [Unknown]
  - Nausea [Unknown]
  - Vomiting [Unknown]
  - Diverticulitis [Unknown]
